FAERS Safety Report 26049198 (Version 1)
Quarter: 2025Q4

REPORT INFORMATION
  Report Type: Spontaneous
  Country: US (occurrence: US)
  Receive Date: 20251115
  Receipt Date: 20251115
  Transmission Date: 20260118
  Serious: No
  Sender: ELI LILLY AND COMPANY
  Company Number: US-ELI_LILLY_AND_COMPANY-US202511015319

PATIENT
  Age: 64 Year
  Sex: Female

DRUGS (6)
  1. ZEPBOUND [Suspect]
     Active Substance: TIRZEPATIDE
     Indication: Weight control
     Dosage: 12.5 MG, WEEKLY (1/W)
     Route: 065
     Dates: start: 20251107
  2. ZEPBOUND [Suspect]
     Active Substance: TIRZEPATIDE
     Indication: Sleep apnoea syndrome
  3. ZEPBOUND [Suspect]
     Active Substance: TIRZEPATIDE
     Indication: Blood pressure increased
  4. ZEPBOUND [Suspect]
     Active Substance: TIRZEPATIDE
     Indication: Glucose tolerance impaired
  5. ZEPBOUND [Suspect]
     Active Substance: TIRZEPATIDE
     Indication: High density lipoprotein
  6. PRAVASTATIN [Concomitant]
     Active Substance: PRAVASTATIN
     Indication: High density lipoprotein

REACTIONS (3)
  - Increased appetite [Not Recovered/Not Resolved]
  - Product storage error [Not Recovered/Not Resolved]
  - Apolipoprotein A-I abnormal [Not Recovered/Not Resolved]

NARRATIVE: CASE EVENT DATE: 20251107
